FAERS Safety Report 5314647-1 (Version None)
Quarter: 2007Q2

REPORT INFORMATION
  Report Type: 
  Country: None (occurrence: None)
  Receive Date: 20070502
  Receipt Date: 20070424
  Transmission Date: 20071010
  Serious: Yes (Death, Other)
  Sender: FDA-Public Use
  Company Number: JP-JNJFOC-20070401814

PATIENT
  Sex: Female

DRUGS (10)
  1. DUROTEP [Suspect]
  2. DUROTEP [Suspect]
     Indication: CANCER PAIN
  3. ITRACONAZOLE [Interacting]
     Indication: DRUG USE FOR UNKNOWN INDICATION
     Route: 048
  4. OPSO [Concomitant]
     Indication: CANCER PAIN
     Route: 048
  5. TAKEPRON [Concomitant]
     Route: 048
  6. GASMOTIN [Concomitant]
     Route: 048
  7. MUCOSTA [Concomitant]
     Route: 048
  8. LAXOBERON [Concomitant]
     Route: 048
  9. BAKTAR [Concomitant]
     Route: 048
  10. HYPEN [Concomitant]
     Route: 048

REACTIONS (3)
  - DELIRIUM [None]
  - DRUG INTERACTION [None]
  - MULTIPLE MYELOMA [None]
